FAERS Safety Report 7129499-7 (Version None)
Quarter: 2010Q4

REPORT INFORMATION
  Report Type: 
  Country: None (occurrence: None)
  Receive Date: 20101130
  Receipt Date: 20101116
  Transmission Date: 20110411
  Serious: Yes (Other)
  Sender: FDA-Public Use
  Company Number: NL-MYLANLABS-2010S1021380

PATIENT
  Age: 6 Decade
  Sex: Male

DRUGS (3)
  1. PRAVASTATIN [Suspect]
     Indication: HYPERCHOLESTEROLAEMIA
     Route: 065
  2. CIPROFIBRATE [Concomitant]
     Route: 065
  3. CANDESARTAN CILEXETIL [Concomitant]
     Route: 065

REACTIONS (2)
  - MYALGIA [None]
  - TENDON RUPTURE [None]
